FAERS Safety Report 10205940 (Version 1)
Quarter: 2014Q2

REPORT INFORMATION
  Report Type: Spontaneous
  Country: US (occurrence: US)
  Receive Date: 20140530
  Receipt Date: 20140530
  Transmission Date: 20141212
  Serious: Yes (Hospitalization)
  Sender: FDA-Public Use
  Company Number: US-BRISTOL-MYERS SQUIBB COMPANY-20794046

PATIENT
  Age: 91 Year
  Sex: Male

DRUGS (9)
  1. ELIQUIS [Suspect]
     Indication: CEREBROVASCULAR ACCIDENT PROPHYLAXIS
  2. ASPIRIN [Concomitant]
  3. BENAZEPRIL HCL [Concomitant]
     Dosage: 1DF = 10 UNIT NOS
  4. EXELON [Concomitant]
     Dosage: PATCH
  5. SYNTHROID [Concomitant]
  6. METOPROLOL [Concomitant]
  7. PREDNISONE [Concomitant]
  8. PROTONIX [Concomitant]
  9. SPIRONOLACTONE [Concomitant]

REACTIONS (1)
  - Skin necrosis [Unknown]
